FAERS Safety Report 8143685-9 (Version None)
Quarter: 2012Q1

REPORT INFORMATION
  Report Type: 
  Country: None (occurrence: None)
  Receive Date: 20120217
  Receipt Date: 20120214
  Transmission Date: 20120608
  Serious: Yes (Life-Threatening, Hospitalization)
  Sender: FDA-Public Use
  Company Number: US-BAYER-2011-093529

PATIENT
  Age: 29 Year
  Sex: Female

DRUGS (6)
  1. GLUCOSAMINE SULFATE W/CHONDROITIN [Concomitant]
  2. IBUPROFEN [Concomitant]
  3. YAZ [Suspect]
  4. MULTI-VITAMINS [Concomitant]
  5. YASMIN [Suspect]
  6. DROSPIRENONE AND ETHINYL ESTRADIOL [Suspect]

REACTIONS (7)
  - GENERAL PHYSICAL HEALTH DETERIORATION [None]
  - EMOTIONAL DISTRESS [None]
  - PAIN [None]
  - PULMONARY EMBOLISM [None]
  - INJURY [None]
  - THROMBOSIS [None]
  - ANHEDONIA [None]
